FAERS Safety Report 25264988 (Version 4)
Quarter: 2025Q2

REPORT INFORMATION
  Report Type: Report from Study
  Country: CO (occurrence: CO)
  Receive Date: 20250502
  Receipt Date: 20250623
  Transmission Date: 20250716
  Serious: Yes (Hospitalization)
  Sender: ABBVIE
  Company Number: CO-ABBVIE-6250386

PATIENT
  Age: 48 Year
  Sex: Male

DRUGS (1)
  1. RINVOQ [Suspect]
     Active Substance: UPADACITINIB
     Indication: Colitis ulcerative
     Dosage: FORM STRENGTH: 15 MG
     Route: 048
     Dates: start: 20250201, end: 20250423

REACTIONS (3)
  - Nephrolithiasis [Unknown]
  - Blood urine present [Not Recovered/Not Resolved]
  - Renal abscess [Unknown]

NARRATIVE: CASE EVENT DATE: 20250101
